FAERS Safety Report 7990487-X (Version None)
Quarter: 2011Q4

REPORT INFORMATION
  Report Type: 
  Country: None (occurrence: None)
  Receive Date: 20111219
  Receipt Date: 20110301
  Transmission Date: 20120403
  Serious: No
  Sender: FDA-Public Use
  Company Number: US-ASTRAZENECA-2011SE11178

PATIENT
  Age: 52 Year
  Sex: Female

DRUGS (7)
  1. CALCIUM CARBONATE [Concomitant]
  2. ASPIRIN [Concomitant]
  3. FISH OIL [Concomitant]
  4. CRESTOR [Suspect]
     Route: 048
  5. MULTI-VITAMIN [Concomitant]
  6. VESICARE [Concomitant]
  7. CRESTOR [Suspect]
     Indication: HYPERCHOLESTEROLAEMIA
     Route: 048
     Dates: start: 20100801

REACTIONS (2)
  - HIGH DENSITY LIPOPROTEIN DECREASED [None]
  - NON-CARDIAC CHEST PAIN [None]
